FAERS Safety Report 6141732-7 (Version None)
Quarter: 2009Q1

REPORT INFORMATION
  Report Type: 
  Country: None (occurrence: None)
  Receive Date: 20090331
  Receipt Date: 20090331
  Transmission Date: 20090719
  Serious: No
  Sender: FDA-Public Use
  Company Number: None

PATIENT
  Age: 68 Year
  Sex: Male
  Weight: 139.2543 kg

DRUGS (1)
  1. CEFDINIR [Suspect]
     Indication: PNEUMONIA
     Dosage: 1 TABLET 2 DAILY PO
     Route: 048
     Dates: start: 20090325, end: 20090329

REACTIONS (6)
  - ABNORMAL BEHAVIOUR [None]
  - DYSARTHRIA [None]
  - DYSKINESIA [None]
  - FEELING ABNORMAL [None]
  - HYPERHIDROSIS [None]
  - INCOHERENT [None]
